FAERS Safety Report 4353557-3 (Version None)
Quarter: 2004Q2

REPORT INFORMATION
  Report Type: 
  Country: None (occurrence: None)
  Receive Date: 20040430
  Receipt Date: 20040419
  Transmission Date: 20050107
  Serious: Yes (Hospitalization)
  Sender: FDA-Public Use
  Company Number: 2004CG00754

PATIENT
  Age: 54 Year
  Sex: Female

DRUGS (3)
  1. DIPRIVAN [Suspect]
     Indication: ANAESTHESIA
  2. HYPNOVEL [Suspect]
     Indication: ANAESTHESIA
  3. SUFENTA [Suspect]
     Indication: ANAESTHESIA

REACTIONS (1)
  - RESPIRATORY DISTRESS [None]
